FAERS Safety Report 17430693 (Version 1)
Quarter: 2020Q1

REPORT INFORMATION
  Report Type: Spontaneous
  Country: US (occurrence: US)
  Receive Date: 20200203
  Receipt Date: 20200203
  Transmission Date: 20200409
  Serious: Yes (Other)
  Sender: FDA-Public Use
  Company Number: None

PATIENT
  Sex: Male
  Weight: 105.69 kg

DRUGS (1)
  1. XOLAIR [Suspect]
     Active Substance: OMALIZUMAB
     Dosage: ?          OTHER FREQUENCY:EVERY 4WKS;?
     Route: 058
     Dates: start: 20190823

REACTIONS (4)
  - Urticaria [None]
  - Lip swelling [None]
  - Peripheral swelling [None]
  - Eye swelling [None]
